FAERS Safety Report 6474706-7 (Version None)
Quarter: 2009Q4

REPORT INFORMATION
  Report Type: 
  Country: None (occurrence: None)
  Receive Date: 20091204
  Receipt Date: 20091201
  Transmission Date: 20100525
  Serious: Yes (Hospitalization)
  Sender: FDA-Public Use
  Company Number: A0832500A

PATIENT
  Age: 85 Year
  Sex: Female

DRUGS (7)
  1. VERAMYST [Suspect]
     Indication: EPISTAXIS
     Dosage: 2SPR PER DAY
     Route: 045
     Dates: start: 20080101
  2. SYNTHROID [Concomitant]
  3. OMEPRAZOLE [Concomitant]
  4. UNSPECIFIED MEDICATION [Concomitant]
  5. ASPIRIN [Concomitant]
  6. CLONAZEPAM [Concomitant]
  7. FLUOROMETHOLONE [Concomitant]

REACTIONS (1)
  - BLOOD SODIUM DECREASED [None]
